FAERS Safety Report 10466158 (Version 1)
Quarter: 2014Q3

REPORT INFORMATION
  Report Type: Spontaneous
  Country: US (occurrence: US)
  Receive Date: 20140922
  Receipt Date: 20140922
  Transmission Date: 20150326
  Serious: Yes (Death, Other)
  Sender: FDA-Public Use
  Company Number: US-BRISTOL-MYERS SQUIBB COMPANY-21420476

PATIENT
  Sex: Male

DRUGS (2)
  1. JANUVIA [Suspect]
     Active Substance: SITAGLIPTIN PHOSPHATE
     Dates: start: 201306, end: 201308
  2. BYETTA [Suspect]
     Active Substance: EXENATIDE
     Dates: start: 200903, end: 200907

REACTIONS (3)
  - Pancreatic carcinoma [Unknown]
  - Metastases to liver [Unknown]
  - Death [Fatal]

NARRATIVE: CASE EVENT DATE: 20130813
